FAERS Safety Report 9228848 (Version 2)
Quarter: 2013Q2

REPORT INFORMATION
  Report Type: Spontaneous
  Country: US (occurrence: US)
  Receive Date: 20130412
  Receipt Date: 20130429
  Transmission Date: 20140414
  Serious: No
  Sender: FDA-Public Use
  Company Number: US-PFIZER INC-2013113949

PATIENT
  Sex: Female

DRUGS (1)
  1. ADVIL [Suspect]
     Indication: SINUS HEADACHE
     Dosage: UNK, ONCE A DAY
     Route: 048
     Dates: start: 20130215, end: 20130219

REACTIONS (4)
  - Drug ineffective [Recovered/Resolved]
  - Bedridden [Recovered/Resolved]
  - Feeling abnormal [Recovered/Resolved]
  - Dissociation [Recovered/Resolved]
